FAERS Safety Report 17570711 (Version 1)
Quarter: 2020Q1

REPORT INFORMATION
  Report Type: Spontaneous
  Country: CA (occurrence: CA)
  Receive Date: 20200323
  Receipt Date: 20200323
  Transmission Date: 20200409
  Serious: Yes (Other)
  Sender: FDA-Public Use
  Company Number: CA-TEVA-2020-CA-1207764

PATIENT
  Age: 57 Year
  Sex: Female

DRUGS (11)
  1. DOMPERIDONE [Concomitant]
     Active Substance: DOMPERIDONE
  2. LANSOPRAZOLE. [Concomitant]
     Active Substance: LANSOPRAZOLE
  3. FENOFIBRATE. [Concomitant]
     Active Substance: FENOFIBRATE
  4. METFORMIN [Concomitant]
     Active Substance: METFORMIN HYDROCHLORIDE
  5. TOLTERODINE [Concomitant]
     Active Substance: TOLTERODINE
  6. DOCUSATE SODIUM. [Concomitant]
     Active Substance: DOCUSATE SODIUM
  7. FUROSEMIDE. [Concomitant]
     Active Substance: FUROSEMIDE
  8. AMLODIPINE BESILATE;ATORVASTATIN CALCIUM [Concomitant]
  9. ATENOLOL. [Concomitant]
     Active Substance: ATENOLOL
  10. TOLTERODINE [Suspect]
     Active Substance: TOLTERODINE
     Indication: PRODUCT USED FOR UNKNOWN INDICATION
     Route: 048
  11. RAMIPRIL. [Concomitant]
     Active Substance: RAMIPRIL

REACTIONS (1)
  - Gastrointestinal haemorrhage [Not Recovered/Not Resolved]
